FAERS Safety Report 4515106-6 (Version None)
Quarter: 2004Q4

REPORT INFORMATION
  Report Type: 
  Country: None (occurrence: None)
  Receive Date: 20041201
  Receipt Date: 20041125
  Transmission Date: 20050328
  Serious: Yes (Hospitalization, Other)
  Sender: FDA-Public Use
  Company Number: FR-JNJFOC-20041103983

PATIENT
  Age: 40 Year
  Sex: Male
  Weight: 55 kg

DRUGS (8)
  1. RISPERDAL [Suspect]
     Route: 049
  2. RETROVIR [Suspect]
     Indication: HIV INFECTION
     Route: 049
  3. NORVIR [Suspect]
     Indication: HIV INFECTION
     Route: 049
  4. BACTRIM [Suspect]
     Route: 049
  5. BACTRIM [Suspect]
     Indication: DRUG USE FOR UNKNOWN INDICATION
     Route: 049
  6. SUBUTEX [Suspect]
     Route: 049
  7. CRIXIVAN [Suspect]
     Indication: HIV INFECTION
     Route: 049
  8. TRIFLUCAN [Concomitant]

REACTIONS (2)
  - LEUKOENCEPHALOMYELITIS [None]
  - PANCYTOPENIA [None]
